FAERS Safety Report 5215370-4 (Version None)
Quarter: 2007Q1

REPORT INFORMATION
  Report Type: 
  Country: None (occurrence: None)
  Receive Date: 20070116
  Receipt Date: 20070108
  Transmission Date: 20070707
  Serious: Yes (Hospitalization)
  Sender: FDA-Public Use
  Company Number: 2007-00048

PATIENT
  Age: 85 Year
  Sex: Female
  Weight: 68 kg

DRUGS (2)
  1. VELCADE [Suspect]
     Indication: MYELODYSPLASTIC SYNDROME
     Dosage: 1.50 MG/M2, INTRAVENOUS
     Route: 042
  2. ARACYTINE (CYTARABINE) INJECTION, 10 OR 20MG/M2 [Suspect]
     Indication: MYELODYSPLASTIC SYNDROME
     Dosage: 20.00 MG/M2, SUBCUTANEOUS
     Route: 058
     Dates: start: 20061031

REACTIONS (1)
  - GENERAL PHYSICAL CONDITION ABNORMAL [None]
